FAERS Safety Report 6622803-5 (Version None)
Quarter: 2010Q1

REPORT INFORMATION
  Report Type: 
  Country: None (occurrence: None)
  Receive Date: 20100310
  Receipt Date: 20100226
  Transmission Date: 20100710
  Serious: Yes (Hospitalization)
  Sender: FDA-Public Use
  Company Number: US-ELI_LILLY_AND_COMPANY-US201002007417

PATIENT
  Sex: Female
  Weight: 61 kg

DRUGS (16)
  1. GEMCITABINE HCL [Suspect]
     Indication: PANCREATIC CARCINOMA
     Dosage: 1000 MG/M2, UNK
     Dates: start: 20091216
  2. PACLITAXEL [Suspect]
     Indication: PANCREATIC CARCINOMA
     Dosage: 125 MG/M2, UNK
     Dates: start: 20091216
  3. DEXAMETHASONE [Concomitant]
     Route: 048
     Dates: start: 20091223
  4. HYDROCORTISONE [Concomitant]
     Indication: RASH
     Dosage: UNK, 2/D
     Route: 061
     Dates: start: 20100203
  5. COMPAZINE [Concomitant]
     Indication: PROPHYLAXIS
     Dates: start: 20091223
  6. PERCOCET [Concomitant]
     Route: 048
     Dates: start: 20091223
  7. LORAZEPAM [Concomitant]
     Route: 048
     Dates: start: 20090801
  8. OXYCODONE HCL [Concomitant]
     Route: 048
     Dates: start: 20091203
  9. OMEPRAZOLE [Concomitant]
     Indication: PROPHYLAXIS
     Dates: start: 20091216
  10. OXYCONTIN [Concomitant]
     Route: 048
     Dates: start: 20091203
  11. DOCUSATE [Concomitant]
     Dates: start: 20091203
  12. MIRALAX [Concomitant]
     Indication: PROPHYLAXIS
     Dates: start: 20091216
  13. BISACODYL [Concomitant]
     Route: 048
     Dates: start: 20091216
  14. PROMETHAZINE [Concomitant]
     Route: 048
     Dates: start: 20091217
  15. SENOKOT [Concomitant]
     Route: 048
     Dates: start: 20090912
  16. MEGACE [Concomitant]
     Indication: PROPHYLAXIS
     Route: 048
     Dates: start: 20091229

REACTIONS (1)
  - ENTEROCOLITIS INFECTIOUS [None]
